FAERS Safety Report 23023792 (Version 2)
Quarter: 2023Q4

REPORT INFORMATION
  Report Type: Spontaneous
  Country: ES (occurrence: ES)
  Receive Date: 20231003
  Receipt Date: 20231229
  Transmission Date: 20240110
  Serious: Yes (Other)
  Sender: FDA-Public Use
  Company Number: ES-BRISTOL-MYERS SQUIBB COMPANY-2023-137893

PATIENT
  Age: 62 Year

DRUGS (2)
  1. OPDIVO [Suspect]
     Active Substance: NIVOLUMAB
     Indication: Gastrooesophageal cancer
  2. CISPLATIN\FLUOROURACIL [Suspect]
     Active Substance: CISPLATIN\FLUOROURACIL
     Indication: Retroperitoneal lymphadenopathy
     Dates: start: 20220504

REACTIONS (2)
  - Mucosal inflammation [Unknown]
  - Neurotoxicity [Unknown]
